FAERS Safety Report 11800486 (Version 1)
Quarter: 2015Q4

REPORT INFORMATION
  Report Type: Spontaneous
  Country: IT (occurrence: IT)
  Receive Date: 20151203
  Receipt Date: 20151203
  Transmission Date: 20160305
  Serious: Yes (Death, Hospitalization, Other)
  Sender: FDA-Public Use
  Company Number: IT-BRISTOL-MYERS SQUIBB COMPANY-BMS-2015-080995

PATIENT
  Age: 57 Year
  Sex: Male

DRUGS (3)
  1. CISPLATIN. [Suspect]
     Active Substance: CISPLATIN
     Indication: EXTRAGONADAL PRIMARY GERM CELL TUMOUR
     Dosage: 30 MG, QCYCLE
     Route: 042
     Dates: start: 20150928, end: 20151002
  2. BLEOMYCIN SULFATE [Suspect]
     Active Substance: BLEOMYCIN SULFATE
     Indication: EXTRAGONADAL PRIMARY GERM CELL TUMOUR
     Dosage: 30 MG, QCYCLE
     Route: 042
     Dates: start: 20150929, end: 20151006
  3. ETOPOSIDE. [Suspect]
     Active Substance: ETOPOSIDE
     Indication: EXTRAGONADAL PRIMARY GERM CELL TUMOUR
     Dosage: 155 MG, QCYCLE
     Route: 042
     Dates: start: 20150928, end: 20151002

REACTIONS (2)
  - Dyspnoea [Fatal]
  - Pancytopenia [Fatal]

NARRATIVE: CASE EVENT DATE: 20151013
